FAERS Safety Report 5401533-1 (Version None)
Quarter: 2007Q3

REPORT INFORMATION
  Report Type: 
  Country: None (occurrence: None)
  Receive Date: 20070731
  Receipt Date: 20070724
  Transmission Date: 20080115
  Serious: Yes (Other)
  Sender: FDA-Public Use
  Company Number: US-ROCHE-508430

PATIENT
  Age: 27 Year
  Sex: Female

DRUGS (4)
  1. PEG-INTERFERON ALFA 2A (RO 25-8310) [Suspect]
     Route: 058
     Dates: start: 20050531, end: 20070608
  2. VALTREX [Concomitant]
  3. ASPIRIN [Concomitant]
  4. ALLEGRA [Concomitant]

REACTIONS (1)
  - LUPUS NEPHRITIS [None]
